FAERS Safety Report 20547307 (Version 1)
Quarter: 2022Q1

REPORT INFORMATION
  Report Type: Spontaneous
  Country: US (occurrence: None)
  Receive Date: 20220303
  Receipt Date: 20220303
  Transmission Date: 20220424
  Serious: Yes (Hospitalization)
  Sender: FDA-Public Use
  Company Number: None

PATIENT
  Sex: Male

DRUGS (33)
  1. SPRYCEL [Suspect]
     Active Substance: DASATINIB
     Indication: Chronic myeloid leukaemia
     Dosage: FREQUENCY : DAILY;?
     Route: 048
     Dates: start: 20210901, end: 20220302
  2. SPRYCEL [Suspect]
     Active Substance: DASATINIB
     Dosage: FREQUENCY : DAILY;?
     Route: 048
  3. ALLOPURINOL [Concomitant]
     Active Substance: ALLOPURINOL
  4. ANTI-DIARRHE [Concomitant]
  5. ASPRIN CHW [Concomitant]
  6. ASPIRIN LOW [Concomitant]
  7. ATORVASTATIN [Concomitant]
     Active Substance: ATORVASTATIN
  8. AZELASTINE [Concomitant]
     Active Substance: AZELASTINE
  9. CETIRIZINE HCL [Concomitant]
     Active Substance: CETIRIZINE HYDROCHLORIDE
  10. CLONAZEPAM [Concomitant]
     Active Substance: CLONAZEPAM
  11. DULOXETINE [Concomitant]
     Active Substance: DULOXETINE
  12. FAMOTIDINE [Concomitant]
     Active Substance: FAMOTIDINE
  13. GINGER [Concomitant]
     Active Substance: GINGER
  14. ACETAMINOPHEN\HYDROCODONE [Concomitant]
     Active Substance: ACETAMINOPHEN\HYDROCODONE
  15. HYDROXYUEA [Concomitant]
  16. IMATINIB MESYLATE [Concomitant]
     Active Substance: IMATINIB MESYLATE
  17. LAMOTRIGINE [Concomitant]
     Active Substance: LAMOTRIGINE
  18. LOMOTIL [Concomitant]
     Active Substance: ATROPINE SULFATE\DIPHENOXYLATE HYDROCHLORIDE
  19. LORATADINE [Concomitant]
     Active Substance: LORATADINE
  20. LOSARTAN POTASSIUM [Concomitant]
     Active Substance: LOSARTAN POTASSIUM
  21. MECLIZINE CHW [Concomitant]
  22. METOPROL TAR [Concomitant]
  23. MONTELUKAST SODIUM [Concomitant]
     Active Substance: MONTELUKAST SODIUM
  24. NYSTATIN POW [Concomitant]
  25. OMEPRAZOLE [Concomitant]
     Active Substance: OMEPRAZOLE
  26. PANTOPRAZOLE [Concomitant]
     Active Substance: PANTOPRAZOLE
  27. PROCHLORPER [Concomitant]
  28. SM ANTI-DIAR [Concomitant]
  29. SPRYCEL [Concomitant]
     Active Substance: DASATINIB
  30. SUCRALFATE [Concomitant]
     Active Substance: SUCRALFATE
  31. TIZANIDINE [Concomitant]
     Active Substance: TIZANIDINE
  32. TRIAMCINOLONE ACETONIDE [Concomitant]
     Active Substance: TRIAMCINOLONE ACETONIDE
  33. HERBALS\TURMERIC [Concomitant]
     Active Substance: HERBALS\TURMERIC

REACTIONS (3)
  - Constipation [None]
  - Faeces hard [None]
  - Haemorrhage [None]
